FAERS Safety Report 5826473-5 (Version None)
Quarter: 2008Q3

REPORT INFORMATION
  Report Type: 
  Country: None (occurrence: None)
  Receive Date: 20080724
  Receipt Date: 20080710
  Transmission Date: 20090109
  Serious: Yes (Hospitalization)
  Sender: FDA-Public Use
  Company Number: 239259K07USA

PATIENT
  Age: 24 Year
  Sex: Female
  Weight: 65.7716 kg

DRUGS (6)
  1. REBIF [Suspect]
     Indication: MULTIPLE SCLEROSIS
     Dosage: 22 MCG, 3 IN 1 WEEKS, SUBCUTANEOUS, 44 MCG, 3 IN 1 WEEKS, SUBCUTANEOUS
     Route: 058
     Dates: start: 20070410
  2. REBIF [Suspect]
     Indication: MULTIPLE SCLEROSIS
     Dosage: 22 MCG, 3 IN 1 WEEKS, SUBCUTANEOUS, 44 MCG, 3 IN 1 WEEKS, SUBCUTANEOUS
     Route: 058
     Dates: start: 20080201
  3. LOESTRIN 24 FE [Suspect]
     Indication: ORAL CONTRACEPTION
     Dates: start: 20070901, end: 20071001
  4. BACLOFEN [Concomitant]
  5. CLONAZEPAM [Concomitant]
  6. SINGULAIR [Concomitant]

REACTIONS (2)
  - MENSTRUATION IRREGULAR [None]
  - PULMONARY THROMBOSIS [None]
